FAERS Safety Report 8973658 (Version 1)
Quarter: 2012Q4

REPORT INFORMATION
  Report Type: 
  Country: US (occurrence: US)
  Receive Date: 20121218
  Receipt Date: 20121218
  Transmission Date: 20130627
  Serious: No
  Sender: FDA-Public Use
  Company Number: US-BRISTOL-MYERS SQUIBB COMPANY-16910465

PATIENT
  Age: 55 Year
  Sex: Female

DRUGS (3)
  1. ABILIFY [Suspect]
  2. TEGRETOL [Concomitant]
  3. SEROQUEL [Concomitant]

REACTIONS (2)
  - Dystonia [Recovered/Resolved]
  - Feeling abnormal [Recovered/Resolved]
